FAERS Safety Report 7533846-1 (Version None)
Quarter: 2011Q2

REPORT INFORMATION
  Report Type: 
  Country: None (occurrence: None)
  Receive Date: 20110608
  Receipt Date: 20060512
  Transmission Date: 20111010
  Serious: Yes (Other)
  Sender: FDA-Public Use
  Company Number: PHHO2006LK07737

PATIENT

DRUGS (1)
  1. GLEEVEC [Suspect]

REACTIONS (4)
  - ANAEMIA [None]
  - LIVER FUNCTION TEST ABNORMAL [None]
  - HAEMOLYSIS [None]
  - JAUNDICE [None]
